FAERS Safety Report 10932132 (Version 1)
Quarter: 2015Q1

REPORT INFORMATION
  Report Type: Spontaneous
  Country: US (occurrence: None)
  Receive Date: 20150225
  Receipt Date: 20150225
  Transmission Date: 20150721
  Serious: Yes (Hospitalization)
  Sender: FDA-Public Use
  Company Number: 2014-US-004134

PATIENT
  Age: 58 Year
  Sex: Male
  Weight: 128.3 kg

DRUGS (3)
  1. PRIALT [Suspect]
     Active Substance: ZICONOTIDE ACETATE
     Indication: PAIN
     Dosage: 0.083 UG, QH, INTRATHECAL
     Route: 037
     Dates: end: 20140317
  2. PRIALT [Suspect]
     Active Substance: ZICONOTIDE ACETATE
     Indication: POST LAMINECTOMY SYNDROME
     Dosage: 0.083 UG, QH, INTRATHECAL
     Route: 037
     Dates: end: 20140317
  3. PRIALT [Suspect]
     Active Substance: ZICONOTIDE ACETATE
     Indication: BACK PAIN
     Dosage: 0.083 UG, QH, INTRATHECAL
     Route: 037
     Dates: end: 20140317

REACTIONS (11)
  - Hallucination, auditory [None]
  - Overdose [None]
  - Depression [None]
  - Drug hypersensitivity [None]
  - Pain in extremity [None]
  - Hallucination [None]
  - Device issue [None]
  - Hallucination, olfactory [None]
  - Acute psychosis [None]
  - Underdose [None]
  - Nausea [None]

NARRATIVE: CASE EVENT DATE: 20140318
